FAERS Safety Report 9621158 (Version 1)
Quarter: 2013Q4

REPORT INFORMATION
  Report Type: Spontaneous
  Country: AT (occurrence: AT)
  Receive Date: 20131015
  Receipt Date: 20131015
  Transmission Date: 20140711
  Serious: Yes (Other)
  Sender: FDA-Public Use
  Company Number: AT-BAXTER-2013BAX039923

PATIENT
  Age: 59 Year
  Sex: Female

DRUGS (2)
  1. TISSEEL [Suspect]
     Indication: INTRACRANIAL ANEURYSM
  2. TISSEEL [Suspect]
     Indication: OFF LABEL USE

REACTIONS (3)
  - Cerebral vasoconstriction [Recovered/Resolved with Sequelae]
  - Cerebrovascular accident [Recovered/Resolved with Sequelae]
  - Hemiparesis [Recovered/Resolved with Sequelae]
